FAERS Safety Report 6698796-1 (Version None)
Quarter: 2010Q2

REPORT INFORMATION
  Report Type: 
  Country: None (occurrence: None)
  Receive Date: 20100427
  Receipt Date: 20100419
  Transmission Date: 20101027
  Serious: Yes (Life-Threatening, Hospitalization)
  Sender: FDA-Public Use
  Company Number: PHHY2010FR15054

PATIENT
  Sex: Male
  Weight: 76 kg

DRUGS (1)
  1. EXFORGE [Suspect]
     Indication: HYPERTENSION
     Dosage: UNK
     Dates: start: 20100220, end: 20100227

REACTIONS (12)
  - CARDIOGENIC SHOCK [None]
  - CORONARY ARTERY STENOSIS [None]
  - ELECTROCARDIOGRAM ST SEGMENT ELEVATION [None]
  - HAEMOGLOBIN DECREASED [None]
  - HISTIOCYTOSIS HAEMATOPHAGIC [None]
  - LEFT VENTRICULAR DYSFUNCTION [None]
  - LUNG DISORDER [None]
  - MYOCARDIAL INFARCTION [None]
  - RECTAL HAEMORRHAGE [None]
  - RENAL FAILURE [None]
  - RESPIRATORY DISTRESS [None]
  - THROMBOCYTOPENIA [None]
